FAERS Safety Report 24744098 (Version 2)
Quarter: 2024Q4

REPORT INFORMATION
  Report Type: Spontaneous
  Country: US (occurrence: US)
  Receive Date: 20241217
  Receipt Date: 20241218
  Transmission Date: 20250114
  Serious: No
  Sender: PFIZER
  Company Number: US-PFIZER INC-PV202400158532

PATIENT
  Age: 13 Year
  Sex: Female

DRUGS (3)
  1. GENOTROPIN [Suspect]
     Active Substance: SOMATROPIN
     Indication: Small for dates baby
     Dosage: ALTERNATE 1.6 MG WITH 1.4 MG EVERY OTHER DAY TO AVERAGE 1.5 MG (1.5 MG/DAY 7 DAYS/WK)
  2. GENOTROPIN [Suspect]
     Active Substance: SOMATROPIN
     Dosage: ALTERNATE 1.6 MG WITH 1.4 MG EVERY OTHER DAY TO AVERAGE 1.5 MG (1.5 MG/DAY 7 DAYS/WK)
  3. GENOTROPIN [Suspect]
     Active Substance: SOMATROPIN
     Dosage: 1.4 MG, DAILY

REACTIONS (9)
  - Incorrect dose administered by device [Unknown]
  - Product design issue [Unknown]
  - Poor quality device used [Unknown]
  - Device difficult to use [Unknown]
  - Device mechanical issue [Unknown]
  - Device malfunction [Unknown]
  - Device leakage [Unknown]
  - Device use error [Unknown]
  - Drug dose omission by device [Unknown]
